FAERS Safety Report 11613995 (Version 1)
Quarter: 2015Q4

REPORT INFORMATION
  Report Type: Spontaneous
  Country: US (occurrence: None)
  Receive Date: 20151008
  Receipt Date: 20151008
  Transmission Date: 20160304
  Serious: Yes (Hospitalization, Other)
  Sender: FDA-Public Use
  Company Number: ADR-2014-02394

PATIENT
  Age: 7 Year
  Sex: Male

DRUGS (2)
  1. LIORESAL [Suspect]
     Active Substance: BACLOFEN
     Indication: MUSCLE SPASTICITY
     Dosage: MORE THAN 275 MCG/DAY
  2. LIORESAL [Suspect]
     Active Substance: BACLOFEN
     Indication: MUSCLE SPASTICITY
     Dosage: 275 MCG/DAY

REACTIONS (13)
  - Hypertonia [None]
  - Medical device site erythema [None]
  - Implant site infection [None]
  - Staphylococcus test positive [None]
  - Staphylococcal infection [None]
  - Hypersensitivity [None]
  - Medical device site discharge [None]
  - Meningitis [None]
  - CSF white blood cell count increased [None]
  - Limb discomfort [None]
  - Medical device site scar [None]
  - Implant site extravasation [None]
  - Medical device site discolouration [None]
